FAERS Safety Report 15884212 (Version 2)
Quarter: 2019Q1

REPORT INFORMATION
  Report Type: Spontaneous
  Country: US (occurrence: US)
  Receive Date: 20190129
  Receipt Date: 20190319
  Transmission Date: 20190417
  Serious: No
  Sender: FDA-Public Use
  Company Number: US-PFIZER INC-2018476949

PATIENT
  Age: 64 Year
  Sex: Male
  Weight: 106.58 kg

DRUGS (2)
  1. LYRICA [Suspect]
     Active Substance: PREGABALIN
     Dosage: 500 MG, DAILY (3 CAPSULES IN THE DAYTIME AT 2 CAPSULES AT NIGHT BY MOUTH)
     Dates: start: 2010
  2. LYRICA [Suspect]
     Active Substance: PREGABALIN
     Indication: PAIN
     Dosage: 1 DF, 3X/DAY
     Route: 048

REACTIONS (3)
  - Body height decreased [Unknown]
  - Withdrawal syndrome [Recovered/Resolved]
  - Formication [Recovered/Resolved]
